FAERS Safety Report 5557294-9 (Version None)
Quarter: 2007Q4

REPORT INFORMATION
  Report Type: 
  Country: None (occurrence: None)
  Receive Date: 20071214
  Receipt Date: 20071212
  Transmission Date: 20080405
  Serious: Yes (Hospitalization)
  Sender: FDA-Public Use
  Company Number: IT-BRISTOL-MYERS SQUIBB COMPANY-14013247

PATIENT
  Age: 42 Year
  Sex: Male

DRUGS (2)
  1. PRAVASELECT [Suspect]
     Indication: DYSLIPIDAEMIA
     Route: 048
     Dates: start: 20070720, end: 20070915
  2. ENAPREN [Concomitant]

REACTIONS (1)
  - RENAL FAILURE ACUTE [None]
